FAERS Safety Report 14315200 (Version 1)
Quarter: 2017Q4

REPORT INFORMATION
  Report Type: Spontaneous
  Country: US (occurrence: US)
  Receive Date: 20171221
  Receipt Date: 20171221
  Transmission Date: 20180321
  Serious: Yes (Death, Hospitalization, Other)
  Sender: FDA-Public Use
  Company Number: US-NOVOPROD-578064

PATIENT
  Age: 42 Year
  Sex: Male

DRUGS (1)
  1. NOVOLIN N [Suspect]
     Active Substance: INSULIN HUMAN
     Indication: DIABETES MELLITUS
     Dosage: 20 U, QD
     Route: 065

REACTIONS (3)
  - Hypoglycaemic coma [Fatal]
  - Pulmonary oedema [Fatal]
  - Hypoglycaemic seizure [Unknown]

NARRATIVE: CASE EVENT DATE: 19721020
